FAERS Safety Report 17887824 (Version 2)
Quarter: 2022Q1

REPORT INFORMATION
  Report Type: Spontaneous
  Country: US (occurrence: US)
  Receive Date: 20200612
  Receipt Date: 20220331
  Transmission Date: 20220423
  Serious: Yes (Death, Other)
  Sender: FDA-Public Use
  Company Number: US-SAARTEMIS-SAC202006100209

PATIENT
  Age: 67 Year
  Sex: Male

DRUGS (2)
  1. ZANTAC [Suspect]
     Active Substance: RANITIDINE HYDROCHLORIDE
     Indication: Dyspepsia
     Dosage: 75 MG, QD
     Route: 065
     Dates: start: 200501, end: 201809
  2. ZANTAC [Suspect]
     Active Substance: RANITIDINE HYDROCHLORIDE
     Indication: Gastric ulcer
     Dosage: 150 MG, QD
     Route: 065

REACTIONS (1)
  - Brain neoplasm malignant [Fatal]

NARRATIVE: CASE EVENT DATE: 20180901
